FAERS Safety Report 8462547-0 (Version None)
Quarter: 2012Q2

REPORT INFORMATION
  Report Type: 
  Country: None (occurrence: None)
  Receive Date: 20120607
  Receipt Date: 20120315
  Transmission Date: 20120825
  Serious: Yes (Hospitalization)
  Sender: FDA-Public Use
  Company Number: 2012031120

PATIENT
  Age: 59 Year
  Sex: Female
  Weight: 49.8957 kg

DRUGS (18)
  1. HIZENTRA [Suspect]
     Indication: MULTIPLE SCLEROSIS
     Dosage: (12 GM, 4 GM (20ML) TWICE A WEEK FOR 4 WEEKS THEN ONCE A WEEK THEREAFTER, SUBCUTANEOUS)
     Route: 058
     Dates: start: 20120117, end: 20120117
  2. FENTANYL [Concomitant]
  3. VICODIN [Concomitant]
  4. DIAZEPAM [Concomitant]
  5. TOPAMAX [Concomitant]
  6. ARICEPT [Concomitant]
  7. PROCHLOPERAZINE [Concomitant]
  8. CALCIUM [Concomitant]
  9. HIZENTRA [Suspect]
     Indication: CELLULITIS
     Dosage: (12 G 1X/WEEK, 4 GM (20 ML) ON MULTIPLE SITES, SUBCUTANEOUS)
     Route: 058
     Dates: start: 20120218, end: 20120218
  10. PRILOSEC [Concomitant]
  11. HIZENTRA [Suspect]
     Indication: HYPOGAMMAGLOBULINAEMIA
     Dosage: (12 G 2X/WEEK SUBCUTANEOUS)
     Route: 058
     Dates: start: 20111223
  12. ESTRADIOL [Concomitant]
  13. PROZAC [Concomitant]
  14. LASIX [Concomitant]
  15. HIZENTRA [Suspect]
     Indication: IMMUNODEFICIENCY COMMON VARIABLE
     Dosage: (12 G 2X/WEEK, 4 GM (20 ML) SUBCUTANEOUS
     Route: 058
     Dates: start: 20111227, end: 20111227
  16. LOVASTATIN [Concomitant]
  17. VITAMIN D [Concomitant]
  18. VITAMIN B COMPLEX CAP [Concomitant]

REACTIONS (4)
  - NAUSEA [None]
  - RASH [None]
  - HYPERTENSION [None]
  - DIARRHOEA [None]
